FAERS Safety Report 9330247 (Version 1)
Quarter: 2013Q2

REPORT INFORMATION
  Report Type: Spontaneous
  Country: US (occurrence: US)
  Receive Date: 20130604
  Receipt Date: 20130604
  Transmission Date: 20140414
  Serious: Yes (Hospitalization, Other)
  Sender: FDA-Public Use
  Company Number: US-MYLANLABS-2013S1011555

PATIENT
  Age: 80 Year
  Sex: Female
  Weight: 54.43 kg

DRUGS (3)
  1. HYDROCHLOROTHIAZIDE TABLETS, USP [Suspect]
     Route: 048
     Dates: start: 20130513, end: 20130519
  2. CLOPIDOGREL TABLETS USP [Suspect]
     Route: 048
     Dates: start: 20130513, end: 20130519
  3. METOPROLOL [Concomitant]

REACTIONS (2)
  - Drug hypersensitivity [Recovered/Resolved]
  - Pain [Recovered/Resolved]
